FAERS Safety Report 9049411 (Version 1)
Quarter: 2013Q1

REPORT INFORMATION
  Report Type: Spontaneous
  Country: US (occurrence: US)
  Receive Date: 20130205
  Receipt Date: 20130205
  Transmission Date: 20140127
  Serious: No
  Sender: FDA-Public Use
  Company Number: US-PFIZER INC-2013040575

PATIENT
  Sex: Male

DRUGS (2)
  1. LYRICA [Suspect]
     Indication: NEUROPATHY PERIPHERAL
     Dosage: 300 MG/DAY
     Dates: start: 2006
  2. LYRICA [Suspect]
     Dosage: 1500 MG/DAY

REACTIONS (2)
  - Drug tolerance [Unknown]
  - Drug effect decreased [Unknown]
